FAERS Safety Report 19367313 (Version 1)
Quarter: 2021Q2

REPORT INFORMATION
  Report Type: Spontaneous
  Country: CA (occurrence: CA)
  Receive Date: 20210603
  Receipt Date: 20210603
  Transmission Date: 20210717
  Serious: Yes (Hospitalization, Other)
  Sender: FDA-Public Use
  Company Number: CA-PFIZER INC-2021629886

PATIENT
  Age: 58 Year
  Sex: Female

DRUGS (10)
  1. VITAMINE D [Concomitant]
     Active Substance: CHOLECALCIFEROL
     Dosage: UNK
  2. METHOTREXATE SODIUM. [Suspect]
     Active Substance: METHOTREXATE SODIUM
     Dosage: 10 MG, WEEKLY
     Route: 048
     Dates: start: 202105
  3. CIPROFLOXACIN. [Concomitant]
     Active Substance: CIPROFLOXACIN
     Dosage: CIPROFLOXACIN X ANOTHER 5 DAYS THEN STOP
  4. METHOTREXATE SODIUM. [Suspect]
     Active Substance: METHOTREXATE SODIUM
     Dosage: 1 DF CEASED  SIGNIFICANT INTOLERANCE: HEADACHES REQUIRING HOSPITALIZATION
  5. CORTISONE [Concomitant]
     Active Substance: CORTISONE
     Dosage: 50 MG GRADUALLY DECREASING (THEN GRADUALLY DECREASING BY END OF JULY 2021 )
     Dates: start: 20210523
  6. FER [ASCORBIC ACID;FERROUS CHLORIDE] [Concomitant]
     Dosage: 1 DF DOSAGE INFORMATION NOT AVAILABLE.
  7. CORTISONE [Concomitant]
     Active Substance: CORTISONE
     Dosage: 50 MG GRADUALLY DECREASING
     Dates: start: 20210519
  8. AVAPRO [Concomitant]
     Active Substance: IRBESARTAN
     Dosage: UNK DOSAGE INFORMATION NOT AVAILABLE
  9. INFLECTRA [Concomitant]
     Active Substance: INFLIXIMAB-DYYB
     Indication: CROHN^S DISEASE
     Dosage: HOSPITAL START/ Q 0, 2, 6 WEEKS, THEN EVERY 8 WEEKS
     Route: 042
     Dates: start: 20210517
  10. METRONIDAZOLE. [Concomitant]
     Active Substance: METRONIDAZOLE
     Dosage: METRONIDAZOLE X 4 MORE DAYS THEN STOP

REACTIONS (14)
  - Abdominal pain [Unknown]
  - Fatigue [Unknown]
  - Rectocele [Not Recovered/Not Resolved]
  - Diverticulitis [Unknown]
  - Pneumonia [Unknown]
  - Decreased appetite [Unknown]
  - Hypertension [Unknown]
  - Drug intolerance [Unknown]
  - Headache [Unknown]
  - Pyrexia [Unknown]
  - Urinary tract infection [Unknown]
  - Ulcer [Unknown]
  - Haematochezia [Unknown]
  - Diarrhoea [Unknown]
